FAERS Safety Report 9611557 (Version 1)
Quarter: 2013Q4

REPORT INFORMATION
  Report Type: Report from Study
  Country: US (occurrence: US)
  Receive Date: 20131010
  Receipt Date: 20131010
  Transmission Date: 20140711
  Serious: Yes (Other)
  Sender: FDA-Public Use
  Company Number: PHEH2013US020942

PATIENT
  Sex: Female
  Weight: 68.27 kg

DRUGS (8)
  1. ZOMETA [Suspect]
     Dosage: 4MG/ 5ML
  2. DEXAMETHASON [Concomitant]
     Dosage: 0.75 MG, UNK
  3. XANAX [Concomitant]
     Dosage: 0.25 MG, UNK
  4. WELLBUTRIN [Concomitant]
     Dosage: 100 MG, UNK
  5. ATENOLOL [Concomitant]
     Dosage: 25 MG, UNK
  6. VALTREX [Concomitant]
     Dosage: 500 MG, UNK
  7. PERCOCET [Concomitant]
     Dosage: 2.5-325
  8. OMEPRAZOLE [Concomitant]
     Dosage: 20.6 MG, UNK

REACTIONS (1)
  - Pneumonia [Unknown]
